FAERS Safety Report 15701272 (Version 3)
Quarter: 2019Q2

REPORT INFORMATION
  Report Type: Report from Study
  Country: PL (occurrence: PL)
  Receive Date: 20181207
  Receipt Date: 20190402
  Transmission Date: 20190711
  Serious: Yes (Death)
  Sender: FDA-Public Use
  Company Number: PL-CHIESI USA, INC.-PL-2018CHI000546

PATIENT
  Sex: Female
  Weight: 1.6 kg

DRUGS (3)
  1. CAFFEINE CITRATE. [Concomitant]
     Active Substance: CAFFEINE CITRATE
     Indication: PRODUCT USED FOR UNKNOWN INDICATION
     Dosage: 6.5 MG, QD
     Dates: start: 20180712, end: 20180721
  2. CUROSURF [Suspect]
     Active Substance: PORACTANT ALFA
     Indication: NEONATAL RESPIRATORY DISTRESS SYNDROME
     Dosage: 4 ML, SINGLE
     Route: 039
     Dates: start: 20180712, end: 20180712
  3. GLUCOSE [Concomitant]
     Active Substance: DEXTROSE
     Indication: PREMEDICATION
     Dosage: 0.5 ML, QD
     Dates: start: 20180712, end: 20180712

REACTIONS (3)
  - Sepsis neonatal [Fatal]
  - Klebsiella infection [Fatal]
  - Product administration error [Fatal]

NARRATIVE: CASE EVENT DATE: 2018
